FAERS Safety Report 24652122 (Version 2)
Quarter: 2024Q4

REPORT INFORMATION
  Report Type: Spontaneous
  Country: IQ (occurrence: IQ)
  Receive Date: 20241122
  Receipt Date: 20241125
  Transmission Date: 20250114
  Serious: Yes (Other)
  Sender: STRIDES
  Company Number: None

PATIENT
  Age: 31 Year
  Sex: Male

DRUGS (5)
  1. PREDNISOLONE [Suspect]
     Active Substance: PREDNISOLONE
     Indication: Takayasu^s arteritis
     Dosage: 60 MILLIGRAM, QD
     Route: 048
     Dates: start: 2023
  2. PREDNISOLONE [Suspect]
     Active Substance: PREDNISOLONE
     Dosage: UNK, DOWN-TITRATED
     Route: 048
     Dates: start: 2023
  3. METHOTREXATE [Suspect]
     Active Substance: METHOTREXATE
     Indication: Takayasu^s arteritis
     Dosage: 15 MILLIGRAM, ONCE A WEEK
     Route: 065
     Dates: start: 2023
  4. ETANERCEPT [Concomitant]
     Active Substance: ETANERCEPT
     Indication: Back pain
     Dosage: 50 MILLIGRAM, ONCE A WEEK
     Route: 058
     Dates: start: 20230119
  5. INFLIXIMAB [Concomitant]
     Active Substance: INFLIXIMAB
     Indication: Takayasu^s arteritis
     Dosage: 5 MILLIGRAM/KILOGRAM
     Route: 042
     Dates: start: 2023

REACTIONS (3)
  - Erectile dysfunction [Unknown]
  - Acne [Unknown]
  - Off label use [Unknown]

NARRATIVE: CASE EVENT DATE: 20230101
